FAERS Safety Report 16217044 (Version 1)
Quarter: 2019Q2

REPORT INFORMATION
  Report Type: Spontaneous
  Country: US (occurrence: US)
  Receive Date: 20190315
  Receipt Date: 20190315
  Transmission Date: 20190711
  Serious: No
  Sender: FDA-Public Use
  Company Number: None

PATIENT
  Age: 52 Year
  Sex: Female

DRUGS (1)
  1. COSENTYX [Suspect]
     Active Substance: SECUKINUMAB
     Dates: start: 20170202

REACTIONS (3)
  - Spinal operation [None]
  - Therapy cessation [None]
  - Condition aggravated [None]

NARRATIVE: CASE EVENT DATE: 20180915
